FAERS Safety Report 4505350-6 (Version None)
Quarter: 2004Q4

REPORT INFORMATION
  Report Type: 
  Country: None (occurrence: None)
  Receive Date: 20041119
  Receipt Date: 20041025
  Transmission Date: 20050328
  Serious: Yes (Other)
  Sender: FDA-Public Use
  Company Number: 200420799GDDC

PATIENT
  Age: 35 Year
  Sex: Female

DRUGS (5)
  1. CLOMID [Suspect]
     Dosage: DOSE: UNK
     Route: 048
  2. PROZAC [Suspect]
     Indication: DEPRESSION
     Route: 048
  3. RANITIDINE [Concomitant]
     Dosage: DOSE: UNK
  4. IRON TABLETS [Concomitant]
     Dosage: DOSE: UNK
  5. ZOPICLONE [Concomitant]
     Dosage: DOSE: UNK
     Route: 048

REACTIONS (1)
  - HYPOGLYCAEMIA [None]
